FAERS Safety Report 9459535 (Version 2)
Quarter: 2013Q4

REPORT INFORMATION
  Report Type: Spontaneous
  Country: US (occurrence: US)
  Receive Date: 20130815
  Receipt Date: 20131213
  Transmission Date: 20140711
  Serious: No
  Sender: FDA-Public Use
  Company Number: US-PFIZER INC-2013235642

PATIENT
  Age: 55 Year
  Sex: Female
  Weight: 90.7 kg

DRUGS (9)
  1. LYRICA [Suspect]
     Indication: NEURALGIA
     Dosage: 100 MG, 3X/DAY
     Route: 048
  2. LYRICA [Suspect]
     Indication: NERVE INJURY
     Dosage: 50 MG, 3X/DAY
     Route: 048
     Dates: start: 2013
  3. LYRICA [Suspect]
     Indication: BONE CANCER
  4. ALPRAZOLAM [Concomitant]
     Dosage: UNK
  5. AROMASIN [Concomitant]
     Dosage: UNK
  6. DEXAMETHASONE [Concomitant]
     Dosage: UNK
  7. HYDROCHLOROTHIAZIDE [Concomitant]
     Dosage: UNK
  8. PERCOCET [Concomitant]
     Dosage: UNK
  9. PROBIOTICS [Concomitant]
     Dosage: UNK

REACTIONS (2)
  - Off label use [Unknown]
  - Nasopharyngitis [Not Recovered/Not Resolved]
